FAERS Safety Report 7764384 (Version 3)
Quarter: 2013Q3

REPORT INFORMATION
  Report Type: Report from Study
  Country: US (occurrence: US)
  Receive Date: 20110118
  Receipt Date: 20130816
  Transmission Date: 20140515
  Serious: Yes (Other)
  Sender: FDA-Public Use
  Company Number: US-PFIZER INC-2011008307

PATIENT
  Age: 25 Year
  Sex: Female
  Weight: 122 kg

DRUGS (5)
  1. LYRICA [Suspect]
     Indication: FIBROMYALGIA
     Dosage: 75 MG, 3X/DAY
     Route: 048
     Dates: start: 2008, end: 200807
  2. LYRICA [Suspect]
     Dosage: UNK
     Dates: start: 200909, end: 201010
  3. LYRICA [Suspect]
     Dosage: UNK
     Dates: start: 201010
  4. LYRICA [Suspect]
     Dosage: 450 MG, 3X/DAY
     Route: 048
     Dates: start: 200802
  5. PHENERGAN [Concomitant]
     Indication: NAUSEA
     Dosage: UNK
     Route: 048
     Dates: start: 200908

REACTIONS (13)
  - Overdose [Unknown]
  - Drug withdrawal syndrome [Recovered/Resolved]
  - Hypersensitivity [Unknown]
  - Pruritus generalised [Recovered/Resolved]
  - Diarrhoea [Recovered/Resolved]
  - Nausea [Recovered/Resolved]
  - Tremor [Recovered/Resolved]
  - Paraesthesia [Recovered/Resolved]
  - Hot flush [Recovered/Resolved]
  - Feeling abnormal [Recovered/Resolved]
  - Malaise [Recovered/Resolved]
  - Influenza like illness [Recovered/Resolved]
  - Blood cholesterol increased [Unknown]
